FAERS Safety Report 25763687 (Version 1)
Quarter: 2025Q3

REPORT INFORMATION
  Report Type: Spontaneous
  Country: US (occurrence: US)
  Receive Date: 20250905
  Receipt Date: 20250905
  Transmission Date: 20251021
  Serious: No
  Sender: DOMPE FARMACEUTICI
  Company Number: US-FARMAPROD-202411-3933

PATIENT
  Sex: Female
  Weight: 68.95 kg

DRUGS (8)
  1. OXERVATE [Suspect]
     Active Substance: CENEGERMIN-BKBJ
     Indication: Neurotrophic keratopathy
     Route: 047
     Dates: start: 20241104
  2. BUDESONIDE-FORMOTEROL FUMARATE [Concomitant]
  3. TRULICITY [Concomitant]
     Active Substance: DULAGLUTIDE
  4. DIAZEPAM [Concomitant]
     Active Substance: DIAZEPAM
  5. ATORVASTATIN CALCIUM [Concomitant]
     Active Substance: ATORVASTATIN CALCIUM
  6. JANUVIA [Concomitant]
     Active Substance: SITAGLIPTIN PHOSPHATE
  7. SPIRIVA [Concomitant]
     Active Substance: TIOTROPIUM BROMIDE MONOHYDRATE
  8. MONTELUKAST SODIUM [Concomitant]
     Active Substance: MONTELUKAST SODIUM

REACTIONS (3)
  - Overdose [Unknown]
  - Eye irritation [Unknown]
  - Wrong technique in product usage process [Unknown]
